FAERS Safety Report 18666043 (Version 1)
Quarter: 2020Q4

REPORT INFORMATION
  Report Type: Spontaneous
  Country: GB (occurrence: GB)
  Receive Date: 20201226
  Receipt Date: 20201226
  Transmission Date: 20210114
  Serious: Yes (Life-Threatening, Hospitalization)
  Sender: FDA-Public Use
  Company Number: GB-TEVA-2020-GB-1860939

PATIENT
  Age: 47 Year
  Sex: Female
  Weight: 80 kg

DRUGS (9)
  1. ESTRADIOL. [Concomitant]
     Active Substance: ESTRADIOL
  2. BISOPROLOL [Concomitant]
     Active Substance: BISOPROLOL
     Dosage: 2.5MILLIGRAM
  3. UTROGESTAN [Concomitant]
     Active Substance: PROGESTERONE
     Indication: HORMONE REPLACEMENT THERAPY
  4. VORICONAZOLE. [Concomitant]
     Active Substance: VORICONAZOLE
     Dosage: 400MILLIGRAM
  5. TEVA UK FLUDARABINE [Suspect]
     Active Substance: FLUDARABINE PHOSPHATE
     Indication: ACUTE MYELOID LEUKAEMIA
     Dosage: 50MILLIGRAM
     Route: 042
     Dates: start: 20201002, end: 20201006
  6. TESTOSTERONE. [Concomitant]
     Active Substance: TESTOSTERONE
  7. DOXYCYCLINE. [Concomitant]
     Active Substance: DOXYCYCLINE
     Dosage: 50MILLIGRAM
  8. COTRIMOXAZOLE [Concomitant]
     Active Substance: SULFAMETHOXAZOLE\TRIMETHOPRIM
     Dosage: ON MONDAY, WEDNESDAY AND FRIDAYS.UNIT DOSE:960MILLIGRAM
  9. DIGOXIN. [Concomitant]
     Active Substance: DIGOXIN
     Dosage: 125MICROGRAM

REACTIONS (2)
  - Depressed level of consciousness [Unknown]
  - Leukoencephalopathy [Not Recovered/Not Resolved]

NARRATIVE: CASE EVENT DATE: 20201110
